FAERS Safety Report 10129711 (Version 2)
Quarter: 2015Q1

REPORT INFORMATION
  Report Type: Other
  Country: US (occurrence: US)
  Receive Date: 20140428
  Receipt Date: 20150213
  Transmission Date: 20150720
  Serious: Yes (Hospitalization, Other)
  Sender: FDA-Public Use
  Company Number: US-GSKPPD-2014GSK031738

PATIENT
  Age: 57 Year
  Sex: Male

DRUGS (8)
  1. AVANDIA [Suspect]
     Active Substance: ROSIGLITAZONE MALEATE
     Indication: DIABETES MELLITUS
     Dosage: AVANDIA WAS NOT LISTED AMONG THE PATIENTS RECORDS REVIEWED.
     Route: 048
  2. TOPROL XL [Concomitant]
     Active Substance: METOPROLOL SUCCINATE
     Dates: end: 200310
  3. UNIRETIC [Concomitant]
     Active Substance: HYDROCHLOROTHIAZIDE\MOEXIPRIL HYDROCHLORIDE
     Dates: end: 200310
  4. LOPRESSOR [Concomitant]
     Active Substance: METOPROLOL TARTRATE
     Dates: end: 200310
  5. ISODORBIDE [Concomitant]
     Dates: end: 200310
  6. NITRO-BID [Concomitant]
     Active Substance: NITROGLYCERIN
     Route: 062
     Dates: end: 200310
  7. ASPIRIN. [Concomitant]
     Active Substance: ASPIRIN
  8. CLONIDINE. [Concomitant]
     Active Substance: CLONIDINE
     Dates: end: 200310

REACTIONS (1)
  - Arteriosclerosis [Recovered/Resolved]

NARRATIVE: CASE EVENT DATE: 20030929
